FAERS Safety Report 12843344 (Version 1)
Quarter: 2016Q4

REPORT INFORMATION
  Report Type: Spontaneous
  Country: US (occurrence: US)
  Receive Date: 20161013
  Receipt Date: 20161013
  Transmission Date: 20170207
  Serious: Yes (Other)
  Sender: FDA-Public Use
  Company Number: None

PATIENT
  Age: 53 Year
  Sex: Female
  Weight: 72.64 kg

DRUGS (5)
  1. GENERIC PEPCID [Concomitant]
  2. HYOSYAMINE 0.125 MG SUBLINGUAL TABS, DISOLVE ONE TABLET UNDER TONGUE FOUR TIMES DAILY [Suspect]
     Active Substance: HYOSCYAMINE
     Indication: GENITO-PELVIC PAIN/PENETRATION DISORDER
     Dosage: ?          QUANTITY:L TABLET;?
     Route: 048
     Dates: start: 20160810, end: 20160813
  3. LLIADA [Concomitant]
  4. DICYLOMI [Concomitant]
  5. VITAMIN D [Concomitant]
     Active Substance: CHOLECALCIFEROL

REACTIONS (4)
  - Abdominal discomfort [None]
  - Loss of employment [None]
  - Nausea [None]
  - Product quality issue [None]

NARRATIVE: CASE EVENT DATE: 20160810
